FAERS Safety Report 7417032-1 (Version None)
Quarter: 2011Q2

REPORT INFORMATION
  Report Type: 
  Country: None (occurrence: None)
  Receive Date: 20110415
  Receipt Date: 20100116
  Transmission Date: 20111010
  Serious: Yes (Death, Other)
  Sender: FDA-Public Use
  Company Number: US-BAYER-201011472NA

PATIENT
  Age: 76 Year
  Sex: Male
  Weight: 72.562 kg

DRUGS (20)
  1. METOPROLOL TARTRATE [Concomitant]
     Dosage: 50 MG, BID
     Route: 048
  2. NPH INSULIN [Concomitant]
     Dosage: 10 UNITES PM
     Dates: start: 19750101
  3. FOSINOPRIL SODIUM [Concomitant]
     Dosage: 40 MG, QD
     Route: 048
  4. TRASYLOL [Suspect]
     Indication: CORONARY ARTERY BYPASS
     Dosage: 200 ML, LOADING DOSE
     Dates: start: 20040102
  5. SIMVASTATIN [Concomitant]
     Dosage: 20 MG, HS
     Route: 048
  6. DOPAMINE HCL [Concomitant]
     Dosage: 3MCG/KG/MIN
     Route: 042
     Dates: start: 20040102, end: 20040102
  7. NITROGLYCERIN [Concomitant]
     Dosage: 0.2MCG/KG/MIN
     Route: 042
     Dates: start: 20040102
  8. TRASYLOL [Suspect]
     Dosage: 200 ML FROM 0845 AM TO 1015
     Dates: start: 20040102, end: 20040102
  9. ANCEF [Concomitant]
     Dosage: 1 G, UNK
     Route: 042
     Dates: start: 20040102
  10. ALBUMIN (HUMAN) [Concomitant]
     Dosage: 500 ML
     Dates: start: 20040102, end: 20040102
  11. NPH INSULIN [Concomitant]
     Indication: TYPE 2 DIABETES MELLITUS
     Dosage: 50 UNITS AM
     Dates: start: 19750101
  12. ISOLYTE [Concomitant]
     Dosage: 1000
     Dates: start: 20040102, end: 20040102
  13. PLASMA-LYTE [ELECTROLYTES NOS] [Concomitant]
     Dosage: 2100 UNK, UNK
     Dates: start: 20040102, end: 20040102
  14. ALBUMIN (HUMAN) [Concomitant]
     Dosage: 500 ML, UNK
     Dates: start: 20040102, end: 20040102
  15. TERAZOSIN [Concomitant]
     Indication: BENIGN PROSTATIC HYPERPLASIA
     Dosage: 10 G, AT BEDTIME
     Route: 048
  16. VANCOMYCIN [Concomitant]
     Dosage: 1 G, UNK
     Route: 042
     Dates: start: 20040102
  17. PROTAMINE SULFATE [Concomitant]
     Dosage: 30
     Dates: start: 20040102, end: 20040102
  18. SYNTHROID [Concomitant]
     Dosage: 0.05 MG, QD
     Route: 048
  19. HEPARIN [Concomitant]
     Dosage: 26,000 UNITS
     Dates: start: 20040102, end: 20040102
  20. PROTAMINE SULFATE [Concomitant]
     Dosage: 100
     Dates: start: 20040102, end: 20040102

REACTIONS (16)
  - RENAL IMPAIRMENT [None]
  - DEPRESSION [None]
  - DEATH [None]
  - MYOCARDIAL INFARCTION [None]
  - PAIN [None]
  - RENAL INJURY [None]
  - UNEVALUABLE EVENT [None]
  - FEAR [None]
  - MULTI-ORGAN FAILURE [None]
  - ORGAN FAILURE [None]
  - ANXIETY [None]
  - INJURY [None]
  - RENAL FAILURE [None]
  - ANHEDONIA [None]
  - CEREBROVASCULAR ACCIDENT [None]
  - CARDIAC DISORDER [None]
